FAERS Safety Report 4491958-3 (Version None)
Quarter: 2004Q4

REPORT INFORMATION
  Report Type: 
  Country: None (occurrence: None)
  Receive Date: 20041029
  Receipt Date: 20041029
  Transmission Date: 20050328
  Serious: Yes (Other)
  Sender: FDA-Public Use
  Company Number: None

PATIENT
  Sex: Male
  Weight: 81.6475 kg

DRUGS (4)
  1. TEGRETOL [Suspect]
     Dosage: TWICE TABS BID
     Dates: start: 19990729
  2. KLONOPIN [Suspect]
     Dosage: ONCE TAB  8PM
     Dates: start: 19990729
  3. THORAZINE [Concomitant]
  4. DILANTIN [Concomitant]

REACTIONS (4)
  - CONDITION AGGRAVATED [None]
  - CONVULSION [None]
  - DRUG INEFFECTIVE [None]
  - PHARMACEUTICAL PRODUCT COMPLAINT [None]
